FAERS Safety Report 11401089 (Version 2)
Quarter: 2015Q3

REPORT INFORMATION
  Report Type: Report from Study
  Country: MY (occurrence: MY)
  Receive Date: 20150820
  Receipt Date: 20150901
  Transmission Date: 20151125
  Serious: Yes (Death)
  Sender: FDA-Public Use
  Company Number: PHHY2015MY100878

PATIENT
  Age: 68 Year
  Sex: Female

DRUGS (1)
  1. GLIVEC [Suspect]
     Active Substance: IMATINIB MESYLATE
     Indication: GASTROINTESTINAL STROMAL TUMOUR
     Dosage: 400 MG, UNK
     Route: 065
     Dates: end: 201505

REACTIONS (3)
  - Malignant neoplasm progression [Fatal]
  - General physical health deterioration [Unknown]
  - Gastrointestinal stromal tumour [Fatal]

NARRATIVE: CASE EVENT DATE: 201505
